FAERS Safety Report 8850609 (Version 1)
Quarter: 2012Q4

REPORT INFORMATION
  Report Type: 
  Country: US (occurrence: US)
  Receive Date: 20121019
  Receipt Date: 20121019
  Transmission Date: 20130627
  Serious: Yes (Hospitalization, Other)
  Sender: FDA-Public Use
  Company Number: US-ASTRAZENECA-2012SE78198

PATIENT
  Age: 75 Year
  Sex: Female

DRUGS (4)
  1. CRESTOR [Suspect]
     Route: 048
  2. UNSPECIFIED INGREDIENT [Suspect]
     Route: 065
  3. FEMARA [Concomitant]
     Route: 048
  4. HERCEPTIN [Concomitant]
     Dosage: EVERY THREE WEEKS HAS TO GET AN INFUSION

REACTIONS (2)
  - Breast cancer female [Unknown]
  - Adverse event [Unknown]
